FAERS Safety Report 6633435-7 (Version None)
Quarter: 2010Q1

REPORT INFORMATION
  Report Type: 
  Country: None (occurrence: None)
  Receive Date: 20100312
  Receipt Date: 20090618
  Transmission Date: 20100710
  Serious: No
  Sender: FDA-Public Use
  Company Number: US-ABBOTT-09P-163-0581039-00

PATIENT
  Sex: Female
  Weight: 94.432 kg

DRUGS (2)
  1. ERYTHROMYCIN [Suspect]
     Indication: OSTEOMYELITIS
     Route: 048
     Dates: start: 20090501, end: 20090501
  2. ERYTHROMYCIN [Suspect]
     Indication: TOOTH INFECTION

REACTIONS (1)
  - CONSTIPATION [None]
